FAERS Safety Report 4427378-7 (Version None)
Quarter: 2004Q3

REPORT INFORMATION
  Report Type: 
  Country: None (occurrence: None)
  Receive Date: 20040812
  Receipt Date: 20040730
  Transmission Date: 20050211
  Serious: Yes (Hospitalization, Other)
  Sender: FDA-Public Use
  Company Number: 2004044445

PATIENT
  Age: 60 Year
  Sex: Male

DRUGS (6)
  1. EPANUTIN (PHENYTOIN SODIUM) [Suspect]
     Indication: GRAND MAL CONVULSION
     Dosage: 325 MG, ORAL
     Route: 048
  2. ALL OTHER THERAPEUTIC PRODUCTS ( ALL OTHER THERAPEUTIC PRODUCTS) [Concomitant]
  3. CLONAZEPAM [Concomitant]
  4. LEVETIRACETAM [Concomitant]
  5. TOPIRAMATE [Concomitant]
  6. CELECOXIB (CELECOXIB) [Concomitant]

REACTIONS (2)
  - EPILEPSY [None]
  - PHARMACEUTICAL PRODUCT COMPLAINT [None]
